FAERS Safety Report 15571106 (Version 2)
Quarter: 2018Q4

REPORT INFORMATION
  Report Type: Spontaneous
  Country: CH (occurrence: CH)
  Receive Date: 20181031
  Receipt Date: 20181127
  Transmission Date: 20190205
  Serious: Yes (Other)
  Sender: FDA-Public Use
  Company Number: PHHY2018CH140341

PATIENT

DRUGS (12)
  1. PACLITAXEL. [Suspect]
     Active Substance: PACLITAXEL
     Indication: NON-SMALL CELL LUNG CANCER
     Dosage: UNK
     Route: 065
     Dates: start: 201808, end: 201810
  2. NAVELBIN [Suspect]
     Active Substance: VINORELBINE TARTRATE
     Indication: METASTASIS
     Dosage: UNK
     Route: 065
     Dates: start: 20160809
  3. TAGRISSO [Suspect]
     Active Substance: OSIMERTINIB
     Indication: NON-SMALL CELL LUNG CANCER
     Dosage: 80 MG, UNK
     Route: 065
     Dates: start: 20170312
  4. YERVOY [Suspect]
     Active Substance: IPILIMUMAB
     Indication: NON-SMALL CELL LUNG CANCER
     Dosage: UNK
     Route: 065
     Dates: start: 201808, end: 201810
  5. CARBOPLATIN. [Suspect]
     Active Substance: CARBOPLATIN
     Dosage: UNK
     Route: 065
     Dates: start: 20180122
  6. GEFITINIB. [Suspect]
     Active Substance: GEFITINIB
     Indication: NON-SMALL CELL LUNG CANCER
     Dosage: 300 MG, UNK
     Route: 065
     Dates: start: 20160910
  7. TAGRISSO [Suspect]
     Active Substance: OSIMERTINIB
     Dosage: 160 MG, UNK
     Route: 065
     Dates: start: 201703, end: 201708
  8. CISPLATIN. [Suspect]
     Active Substance: CISPLATIN
     Indication: NON-SMALL CELL LUNG CANCER
     Dosage: 110 MG, UNK
     Route: 065
     Dates: start: 20180220
  9. GILOTRIF [Suspect]
     Active Substance: AFATINIB
     Dosage: 20 MG, UNK
     Route: 065
     Dates: start: 20170316
  10. OPDIVO [Suspect]
     Active Substance: NIVOLUMAB
     Indication: NON-SMALL CELL LUNG CANCER
     Dosage: UNK
     Route: 065
     Dates: start: 201808, end: 201810
  11. CARBOPLATIN. [Suspect]
     Active Substance: CARBOPLATIN
     Indication: NON-SMALL CELL LUNG CANCER
     Dosage: UNK
     Route: 065
     Dates: start: 20160809
  12. GILOTRIF [Suspect]
     Active Substance: AFATINIB
     Indication: NON-SMALL CELL LUNG CANCER
     Dosage: 20 MG, UNK
     Route: 065
     Dates: start: 20170311

REACTIONS (2)
  - Non-small cell lung cancer [Unknown]
  - Metastases to central nervous system [Unknown]
